FAERS Safety Report 8549699-9 (Version None)
Quarter: 2012Q3

REPORT INFORMATION
  Report Type: 
  Country: None (occurrence: None)
  Receive Date: 20120730
  Receipt Date: 20120725
  Transmission Date: 20120928
  Serious: Yes (Other)
  Sender: FDA-Public Use
  Company Number: US-PFIZER INC-2012180190

PATIENT
  Age: 17 Month
  Sex: Female
  Weight: 13.605 kg

DRUGS (3)
  1. PEDIATRIC ADVIL [Suspect]
     Indication: PYREXIA
     Dosage: 1.875 ML, UNK
     Dates: start: 20120724
  2. ALBUTEROL [Concomitant]
     Indication: ASTHMA
     Dosage: UNK
  3. PEDIATRIC ADVIL [Suspect]
     Indication: SNEEZING

REACTIONS (7)
  - HYPOAESTHESIA [None]
  - HEARING IMPAIRED [None]
  - FATIGUE [None]
  - SOMNOLENCE [None]
  - HYPORESPONSIVE TO STIMULI [None]
  - VOMITING [None]
  - MOVEMENT DISORDER [None]
